FAERS Safety Report 17755490 (Version 1)
Quarter: 2020Q2

REPORT INFORMATION
  Report Type: Spontaneous
  Country: US (occurrence: US)
  Receive Date: 20200506
  Receipt Date: 20200506
  Transmission Date: 20200714
  Serious: No
  Sender: FDA-Public Use
  Company Number: None

PATIENT
  Age: 72 Year
  Sex: Female

DRUGS (19)
  1. CONCERTA TAB 36MG [Concomitant]
  2. SUCRALFATE TAB 1GM [Concomitant]
  3. FAMOTIDINE TAB 20MG [Concomitant]
  4. LINZESS CAP 290MCG [Concomitant]
  5. DULOXETINE CAP 60MG [Concomitant]
  6. PRIMIDONE TAB 50MG AND 250MG [Concomitant]
  7. ZIPRASIDONE CAP 60MG [Concomitant]
  8. STELARA [Suspect]
     Active Substance: USTEKINUMAB
     Dosage: ?          OTHER FREQUENCY:EVERY 12 WEEKS;?
     Route: 058
  9. POT  CL MICRO TAB 20MEQ ER [Concomitant]
  10. CONCERTA TAB 36MG [Concomitant]
  11. MIRATAZAPINE TAB 30MG [Concomitant]
  12. CELECOXIB CAP 200MG [Concomitant]
  13. ONDANSETRON TAB 4MG [Concomitant]
     Active Substance: ONDANSETRON
  14. LEVOTHYROXIN TAB 137MCG [Concomitant]
  15. METHYLPHENID TAB 36MG ER [Concomitant]
  16. COLCHICINE TAB 0.6 [Concomitant]
  17. TRAZODONE [Concomitant]
     Active Substance: TRAZODONE HYDROCHLORIDE
  18. ESOMEPRA MAG CAP 40MG DR [Concomitant]
     Active Substance: ESOMEPRAZOLE MAGNESIUM
  19. TROKENDI XR CAP 100MG [Concomitant]

REACTIONS (2)
  - Upper limb fracture [None]
  - Hip fracture [None]

NARRATIVE: CASE EVENT DATE: 20200505
